FAERS Safety Report 11567575 (Version 2)
Quarter: 2015Q4

REPORT INFORMATION
  Report Type: Spontaneous
  Country: FR (occurrence: FR)
  Receive Date: 20150929
  Receipt Date: 20151029
  Transmission Date: 20160304
  Serious: Yes (Death, Hospitalization)
  Sender: FDA-Public Use
  Company Number: FR-009507513-1509FRA012213

PATIENT
  Age: 58 Year
  Sex: Male

DRUGS (1)
  1. FIDAXOMICIN [Suspect]
     Active Substance: FIDAXOMICIN
     Indication: CLOSTRIDIUM DIFFICILE INFECTION
     Route: 048

REACTIONS (3)
  - Pulmonary sepsis [Fatal]
  - Treatment failure [Unknown]
  - Clostridium difficile infection [Unknown]
